FAERS Safety Report 12911156 (Version 3)
Quarter: 2017Q1

REPORT INFORMATION
  Report Type: Report from Study
  Country: JP (occurrence: JP)
  Receive Date: 20161104
  Receipt Date: 20170127
  Transmission Date: 20170428
  Serious: Yes (Death, Hospitalization, Other)
  Sender: FDA-Public Use
  Company Number: JP-ASTELLAS-2016JP009234

PATIENT
  Age: 89 Year
  Sex: Male
  Weight: 52 kg

DRUGS (5)
  1. ENZALUTAMIDE [Suspect]
     Active Substance: ENZALUTAMIDE
     Route: 048
     Dates: start: 20150707
  2. ENZALUTAMIDE [Suspect]
     Active Substance: ENZALUTAMIDE
     Route: 048
     Dates: start: 20151222
  3. ENZALUTAMIDE [Suspect]
     Active Substance: ENZALUTAMIDE
     Indication: HORMONE-REFRACTORY PROSTATE CANCER
     Route: 048
     Dates: start: 20150623, end: 20150706
  4. ZOLADEX LA [Suspect]
     Active Substance: GOSERELIN ACETATE
     Indication: PROSTATE CANCER
     Dosage: 10.8 MG, ONCE / 3 MONTHS
     Route: 058
     Dates: start: 20120529, end: 20151222
  5. PROSTAL                            /00093602/ [Concomitant]
     Active Substance: CHLORMADINONE ACETATE
     Indication: PROSTATE CANCER
     Route: 048

REACTIONS (3)
  - Fatigue [Recovering/Resolving]
  - Femoral neck fracture [Recovered/Resolved]
  - Sudden death [Fatal]

NARRATIVE: CASE EVENT DATE: 20150707
